FAERS Safety Report 6499882-1 (Version None)
Quarter: 2009Q4

REPORT INFORMATION
  Report Type: 
  Country: None (occurrence: None)
  Receive Date: 20091214
  Receipt Date: 20091214
  Transmission Date: 20100525
  Serious: Yes (Other)
  Sender: FDA-Public Use
  Company Number: None

PATIENT
  Sex: Male
  Weight: 73.8 kg

DRUGS (1)
  1. FENTANYL-100 [Suspect]
     Dosage: 100 MCG TRANSDERMAL
     Route: 062

REACTIONS (2)
  - INJECTION SITE PRURITUS [None]
  - PRODUCT SUBSTITUTION ISSUE [None]
